FAERS Safety Report 16244674 (Version 2)
Quarter: 2019Q2

REPORT INFORMATION
  Report Type: Report from Study
  Country: US (occurrence: US)
  Receive Date: 20190426
  Receipt Date: 20190502
  Transmission Date: 20190711
  Serious: No
  Sender: FDA-Public Use
  Company Number: US-RETROPHIN, INC.-2019RTN00013

PATIENT
  Age: 4 Month
  Sex: Male

DRUGS (5)
  1. CHOLBAM [Suspect]
     Active Substance: CHOLIC ACID
     Indication: INBORN ERROR IN PRIMARY BILE ACID SYNTHESIS
     Dosage: 50 MG, 1X/DAY
     Dates: start: 20190203
  2. MILRINONE [Concomitant]
     Active Substance: MILRINONE
  3. LASIX [Concomitant]
     Active Substance: FUROSEMIDE
     Route: 042
  4. DOBUTAMINE [Concomitant]
     Active Substance: DOBUTAMINE\DOBUTAMINE HYDROCHLORIDE
  5. MECHANICAL VENTILATION [Concomitant]

REACTIONS (2)
  - Abdominal distension [Unknown]
  - Feeding intolerance [Unknown]

NARRATIVE: CASE EVENT DATE: 201902
